FAERS Safety Report 25242856 (Version 1)
Quarter: 2025Q2

REPORT INFORMATION
  Report Type: Spontaneous
  Country: EU (occurrence: EU)
  Receive Date: 20250427
  Receipt Date: 20250427
  Transmission Date: 20250716
  Serious: Yes (Other)
  Sender: BAUSCH AND LOMB
  Company Number: DE-BAUSCHBL-2024BNL035973

PATIENT
  Age: 74 Year
  Sex: Female

DRUGS (2)
  1. OFLOXACIN [Suspect]
     Active Substance: OFLOXACIN
     Indication: Routine health maintenance
     Route: 065
     Dates: start: 20240122, end: 2024
  2. OFLOXACIN [Suspect]
     Active Substance: OFLOXACIN
     Indication: Product use in unapproved indication

REACTIONS (7)
  - Condition aggravated [Unknown]
  - Tendon pain [Not Recovered/Not Resolved]
  - Myalgia [Not Recovered/Not Resolved]
  - Arthralgia [Not Recovered/Not Resolved]
  - Conjunctivitis [Unknown]
  - Epicondylitis [Not Recovered/Not Resolved]
  - Product use in unapproved indication [Unknown]

NARRATIVE: CASE EVENT DATE: 20240101
